FAERS Safety Report 5794877-5 (Version None)
Quarter: 2008Q2

REPORT INFORMATION
  Report Type: 
  Country: None (occurrence: None)
  Receive Date: 20080626
  Receipt Date: 20080616
  Transmission Date: 20081010
  Serious: Yes (Hospitalization)
  Sender: FDA-Public Use
  Company Number: 2008SP010298

PATIENT
  Age: 75 Year
  Sex: Male

DRUGS (1)
  1. EPTIFIBATIDE (S-P) (EPTIFIBATIDE) [Suspect]
     Indication: ACUTE CORONARY SYNDROME
     Dosage: IV
     Route: 042
     Dates: start: 20080519, end: 20080519

REACTIONS (2)
  - HAEMORRHAGIC STROKE [None]
  - POST PROCEDURAL COMPLICATION [None]
